FAERS Safety Report 19462626 (Version 1)
Quarter: 2021Q2

REPORT INFORMATION
  Report Type: Report from Study
  Country: US (occurrence: US)
  Receive Date: 20210625
  Receipt Date: 20210625
  Transmission Date: 20210717
  Serious: Yes (Death)
  Sender: FDA-Public Use
  Company Number: US-ALLERGAN-2123820US

PATIENT
  Sex: Female

DRUGS (1)
  1. UBROGEPANT 50MG TAB (13759X) [Suspect]
     Active Substance: UBROGEPANT
     Indication: PRODUCT USED FOR UNKNOWN INDICATION
     Dosage: 50 MG, UNKNOWN

REACTIONS (1)
  - Death [Fatal]
